FAERS Safety Report 7725025-X (Version None)
Quarter: 2011Q3

REPORT INFORMATION
  Report Type: 
  Country: None (occurrence: None)
  Receive Date: 20110901
  Receipt Date: 20110824
  Transmission Date: 20111222
  Serious: Yes (Life-Threatening)
  Sender: FDA-Public Use
  Company Number: JP-GENENTECH-304745

PATIENT
  Sex: Male

DRUGS (21)
  1. DOXORUBICIN HCL [Concomitant]
     Dosage: 80 MG, SINGLE
     Dates: start: 20100412
  2. DOXORUBICIN HCL [Concomitant]
     Dosage: 80 MG, SINGLE
     Dates: start: 20100510
  3. VINCRISTINE [Concomitant]
     Dosage: 2 MG, SINGLE
     Dates: start: 20100607
  4. PREDNISOLONE [Concomitant]
     Dosage: 100 MG, SINGLE
     Dates: start: 20100607
  5. VENA [Concomitant]
     Indication: PROPHYLAXIS
     Dosage: 3 TABLET, SINGLE
     Route: 048
  6. RITUXAN [Suspect]
     Indication: LYMPHOMA
     Dosage: 600 MG, UNK
     Route: 042
     Dates: start: 20100323
  7. CYCLOPHOSPHAMIDE [Concomitant]
     Dosage: 1200 MG, SINGLE
     Dates: start: 20100510
  8. RITUXAN [Suspect]
     Dosage: 600 MG, UNK
     Route: 042
     Dates: start: 20100412
  9. RITUXAN [Suspect]
     Dosage: 600 MG, UNK
     Route: 042
     Dates: start: 20100607
  10. DOXORUBICIN HCL [Concomitant]
     Indication: LYMPHOMA
     Dosage: 80 MG, SINGLE
     Dates: start: 20100323
  11. VINCRISTINE [Concomitant]
     Dosage: 2 MG, SINGLE
     Dates: start: 20100412
  12. PREDNISOLONE [Concomitant]
     Indication: LYMPHOMA
     Dosage: 100 MG, SINGLE
     Dates: start: 20100323
  13. PREDNISOLONE [Concomitant]
     Dosage: 100 MG, SINGLE
     Dates: start: 20100510
  14. LOXOPROFEN SODIUM [Concomitant]
     Indication: PROPHYLAXIS
     Dosage: 1 TABLET, SINGLE
     Route: 048
  15. PREDNISOLONE [Concomitant]
     Dosage: 100 MG, SINGLE
     Dates: start: 20100412
  16. RITUXAN [Suspect]
     Dosage: 600 MG, UNK
     Route: 042
     Dates: start: 20100510
  17. CYCLOPHOSPHAMIDE [Concomitant]
     Dosage: 1200 MG, SINGLE
     Dates: start: 20100412
  18. VINCRISTINE [Concomitant]
     Indication: LYMPHOMA
     Dosage: 2 MG, SINGLE
     Dates: start: 20100323
  19. VINCRISTINE [Concomitant]
     Dosage: 2 MG, SINGLE
     Dates: start: 20100510
  20. CYCLOPHOSPHAMIDE [Concomitant]
     Indication: LYMPHOMA
     Dosage: 1200 MG, SINGLE
     Dates: start: 20100323
  21. CYCLOPHOSPHAMIDE [Concomitant]
     Dosage: 1200 MG, SINGLE
     Dates: start: 20100607

REACTIONS (2)
  - PROGRESSIVE MULTIFOCAL LEUKOENCEPHALOPATHY [None]
  - PNEUMONIA ASPIRATION [None]
